FAERS Safety Report 24730435 (Version 1)
Quarter: 2024Q4

REPORT INFORMATION
  Report Type: Spontaneous
  Country: DE (occurrence: DE)
  Receive Date: 20241213
  Receipt Date: 20241213
  Transmission Date: 20250114
  Serious: Yes (Other)
  Sender: BRISTOL-MYERS SQUIBB COMPANY
  Company Number: DE-SANDOZ-SDZ2023DE021947

PATIENT
  Sex: Female

DRUGS (3)
  1. ELIQUIS [Suspect]
     Active Substance: APIXABAN
     Indication: Cerebrovascular accident prophylaxis
     Dosage: MORNING AND EVENING
     Dates: start: 202301
  2. TIZANIDINE [Suspect]
     Active Substance: TIZANIDINE
     Indication: Multiple sclerosis
     Dosage: 6 MG
  3. HERBALS\MINERALS [Suspect]
     Active Substance: HERBALS\MINERALS
     Indication: Multiple sclerosis
     Dosage: UNK
     Dates: start: 20230720

REACTIONS (11)
  - General physical health deterioration [Unknown]
  - Blood pressure increased [Unknown]
  - Heart rate increased [Unknown]
  - Nervousness [Unknown]
  - Disturbance in attention [Unknown]
  - Apathy [Unknown]
  - Balance disorder [Recovering/Resolving]
  - Diarrhoea [Recovering/Resolving]
  - Abdominal distension [Recovering/Resolving]
  - Insomnia [Unknown]
  - Product availability issue [Unknown]
